FAERS Safety Report 15556822 (Version 3)
Quarter: 2018Q4

REPORT INFORMATION
  Report Type: Spontaneous
  Country: AU (occurrence: AU)
  Receive Date: 20181026
  Receipt Date: 20181213
  Transmission Date: 20190205
  Serious: Yes (Disabling)
  Sender: FDA-Public Use
  Company Number: AU-JNJFOC-20181029881

PATIENT

DRUGS (1)
  1. EVICEL [Suspect]
     Active Substance: FIBRINOGEN HUMAN\THROMBIN HUMAN
     Indication: CONNECTIVE TISSUE DISORDER
     Route: 061
     Dates: start: 20181010, end: 20181010

REACTIONS (4)
  - Blindness [Unknown]
  - Product use in unapproved indication [Unknown]
  - Cerebrospinal fluid leakage [Unknown]
  - Off label use [Unknown]

NARRATIVE: CASE EVENT DATE: 20181010
